FAERS Safety Report 10173879 (Version 1)
Quarter: 2014Q2

REPORT INFORMATION
  Report Type: Spontaneous
  Country: US (occurrence: None)
  Receive Date: 20140513
  Receipt Date: 20140513
  Transmission Date: 20141212
  Serious: Yes (Life-Threatening, Hospitalization)
  Sender: FDA-Public Use
  Company Number: 2014AP002894

PATIENT
  Age: 36 Year
  Sex: Female

DRUGS (6)
  1. VERAPAMIL HYDROCHLORIDE [Suspect]
     Route: 048
  2. PROPRANOLOL (PROPRANOLOL) [Suspect]
     Route: 048
  3. LIPID EMULSION [Suspect]
     Indication: CARDIAC ARREST
     Dosage: 20% 0.42 ML/KG; THEN 0.23 ML/KG/MIN, IV BOLUS
     Route: 040
  4. EPINEPHRINE [Concomitant]
  5. SODIUM BICARBONATE [Concomitant]
  6. ACETYLCYSTEINE [Concomitant]

REACTIONS (4)
  - Cardiac arrest [None]
  - Acute respiratory distress syndrome [None]
  - Postresuscitation encephalopathy [None]
  - Hypotension [None]
